FAERS Safety Report 25391986 (Version 1)
Quarter: 2025Q2

REPORT INFORMATION
  Report Type: Spontaneous
  Country: GB (occurrence: GB)
  Receive Date: 20250603
  Receipt Date: 20250603
  Transmission Date: 20250716
  Serious: Yes (Hospitalization, Other)
  Sender: BAYER HEALTHCARE PHARMACEUTICALS INC.
  Company Number: None

PATIENT
  Age: 77 Year
  Sex: Male
  Weight: 100 kg

DRUGS (14)
  1. KERENDIA [Suspect]
     Active Substance: FINERENONE
     Indication: Chronic kidney disease-mineral and bone disorder
     Dosage: 10 MG, QD
     Dates: end: 20240713
  2. CALCIUM CARBONATE\CHOLECALCIFEROL [Concomitant]
     Active Substance: CALCIUM CARBONATE\CHOLECALCIFEROL
  3. CANDESARTAN [Concomitant]
     Active Substance: CANDESARTAN
  4. CLOPIDOGREL [Concomitant]
     Active Substance: CLOPIDOGREL BISULFATE
  5. DAPAGLIFLOZIN [Concomitant]
     Active Substance: DAPAGLIFLOZIN
  6. DOXAZOSIN [Concomitant]
     Active Substance: DOXAZOSIN MESYLATE
  7. DERMOL [Concomitant]
     Active Substance: BENZALKONIUM CHLORIDE\CHLORHEXIDINE HYDROCHLORIDE\ISOPROPYL MYRISTATE\PARAFFIN
  8. FELODIPINE [Concomitant]
     Active Substance: FELODIPINE
  9. FINASTERIDE [Concomitant]
     Active Substance: FINASTERIDE
  10. LINAGLIPTIN [Concomitant]
     Active Substance: LINAGLIPTIN
  11. PERINDOPRIL [Concomitant]
     Active Substance: PERINDOPRIL
  12. ROSUVASTATIN [Concomitant]
     Active Substance: ROSUVASTATIN
  13. TERBINAFINE [Concomitant]
     Active Substance: TERBINAFINE
  14. AMILORIDE [Concomitant]
     Active Substance: AMILORIDE
     Dates: end: 20240525

REACTIONS (1)
  - Hypokalaemia [Recovering/Resolving]

NARRATIVE: CASE EVENT DATE: 20240626
